FAERS Safety Report 9889023 (Version 3)
Quarter: 2014Q1

REPORT INFORMATION
  Report Type: Spontaneous
  Country: US (occurrence: None)
  Receive Date: 20140207
  Receipt Date: 20140324
  Transmission Date: 20141002
  Serious: Yes (Other)
  Sender: FDA-Public Use
  Company Number: UTC-043852

PATIENT
  Age: 32 Year
  Sex: Female

DRUGS (20)
  1. REMODULIN [Suspect]
     Indication: PULMONARY ARTERIAL HYPERTENSION
     Dosage: 8.647 MG/DAY, INTRAVENOUS DRIP
     Route: 041
     Dates: start: 20111101
  2. ADCIRCA (TADALAFIL) [Concomitant]
  3. ADVIL [Concomitant]
  4. BACTRIM DS (BACTRIM) [Concomitant]
  5. CELEXA (CITALOPRAM) [Concomitant]
  6. COUMADIN (WARFARIN SODIUM) [Concomitant]
  7. DIGOXIN (DIGOXIN) [Concomitant]
  8. ERRIN (NORTETHISTERONE) [Concomitant]
  9. FLONASE (FLUTICASONE) [Concomitant]
  10. IRON (IRON) [Concomitant]
  11. IRON INFUSIN (IRON) [Concomitant]
  12. LASIX (FUROSEMIDE) [Concomitant]
  13. LOMITIL (LOMOTIL) [Concomitant]
  14. PLAQUENIL (HYDROXYCHLOROQUINE) [Concomitant]
  15. POTASSIUM (POTASSIUM) [Concomitant]
  16. PREDNISONE (PREDNISONE) [Concomitant]
  17. PROTONIX (PANTOPRAZOLE) [Concomitant]
  18. TRACLEER (BOSENTAN) [Concomitant]
  19. TYLENOL (PARACETAMOL) [Concomitant]
  20. VICODIN (VICODIN) [Concomitant]

REACTIONS (9)
  - Overdose [None]
  - Hyperhidrosis [None]
  - Hypotension [None]
  - Flushing [None]
  - Nausea [None]
  - Defaecation urgency [None]
  - Heart rate increased [None]
  - Injection site swelling [None]
  - Injection site pain [None]
